FAERS Safety Report 23684335 (Version 1)
Quarter: 2024Q1

REPORT INFORMATION
  Report Type: Spontaneous
  Country: US (occurrence: US)
  Receive Date: 20240328
  Receipt Date: 20240328
  Transmission Date: 20240409
  Serious: No
  Sender: FDA-Public Use
  Company Number: US-Evolus, Inc.-2023EV000266

PATIENT
  Age: 30 Year
  Sex: Female

DRUGS (1)
  1. JEUVEAU [Suspect]
     Active Substance: PRABOTULINUMTOXINA-XVFS
     Indication: Product used for unknown indication
     Dates: start: 202302, end: 202302

REACTIONS (4)
  - Tinnitus [Unknown]
  - Hypoaesthesia [Unknown]
  - Vision blurred [Unknown]
  - Off label use [Unknown]
